FAERS Safety Report 12961474 (Version 3)
Quarter: 2017Q1

REPORT INFORMATION
  Report Type: Report from Study
  Country: US (occurrence: US)
  Receive Date: 20161121
  Receipt Date: 20170130
  Transmission Date: 20170428
  Serious: Yes (Death, Other)
  Sender: FDA-Public Use
  Company Number: US-009507513-1611USA005978

PATIENT
  Age: 7 Decade
  Sex: Male

DRUGS (4)
  1. TORSEMIDE. [Concomitant]
     Active Substance: TORSEMIDE
  2. NITROGLYCERIN. [Concomitant]
     Active Substance: NITROGLYCERIN
  3. ZOCOR [Suspect]
     Active Substance: SIMVASTATIN
     Route: 048
  4. PROPRANOLOL HYDROCHLORIDE. [Concomitant]
     Active Substance: PROPRANOLOL HYDROCHLORIDE

REACTIONS (6)
  - Muscle disorder [Unknown]
  - Gun shot wound [Fatal]
  - Arthropathy [Unknown]
  - Depression [Unknown]
  - Personality change [Unknown]
  - Completed suicide [Fatal]
